FAERS Safety Report 15543282 (Version 1)
Quarter: 2018Q4

REPORT INFORMATION
  Report Type: Spontaneous
  Country: US (occurrence: US)
  Receive Date: 20181023
  Receipt Date: 20181023
  Transmission Date: 20190205
  Serious: Yes (Hospitalization)
  Sender: FDA-Public Use
  Company Number: US-OTSUKA-2018_016803

PATIENT
  Age: 51 Year
  Sex: Female

DRUGS (5)
  1. TRAZODONE [Concomitant]
     Active Substance: TRAZODONE HYDROCHLORIDE
     Indication: PRODUCT USED FOR UNKNOWN INDICATION
     Dosage: 50 MG, QD
     Route: 065
  2. ABILIFY [Suspect]
     Active Substance: ARIPIPRAZOLE
     Dosage: 15 MG, QD (QHS)
     Route: 065
  3. ABILIFY [Suspect]
     Active Substance: ARIPIPRAZOLE
     Indication: MAJOR DEPRESSION
     Dosage: UNK (15MG-20MG)
     Route: 065
     Dates: start: 20031106, end: 200608
  4. PREMPRO [Concomitant]
     Active Substance: ESTROGENS, CONJUGATED\MEDROXYPROGESTERONE ACETATE
     Indication: PRODUCT USED FOR UNKNOWN INDICATION
     Dosage: UNK
     Route: 065
  5. ABILIFY [Suspect]
     Active Substance: ARIPIPRAZOLE
     Dosage: 20 MG, QD
     Route: 065

REACTIONS (12)
  - Psychotic disorder [Recovering/Resolving]
  - Mental disorder [Unknown]
  - Economic problem [Unknown]
  - Gambling disorder [Not Recovered/Not Resolved]
  - Injury [Unknown]
  - Divorced [Unknown]
  - Marital problem [Unknown]
  - Blood cholesterol increased [Unknown]
  - Anhedonia [Unknown]
  - Depression [Recovering/Resolving]
  - Ill-defined disorder [Unknown]
  - Anxiety [Unknown]

NARRATIVE: CASE EVENT DATE: 200402
